FAERS Safety Report 6898166-7 (Version None)
Quarter: 2010Q3

REPORT INFORMATION
  Report Type: 
  Country: None (occurrence: None)
  Receive Date: 20100802
  Receipt Date: 20070915
  Transmission Date: 20110219
  Serious: No
  Sender: FDA-Public Use
  Company Number: US-PFIZER INC-2007055780

PATIENT
  Sex: Female
  Weight: 77.11 kg

DRUGS (9)
  1. LYRICA [Suspect]
     Indication: NEUROPATHY PERIPHERAL
     Dates: start: 20060301
  2. ACTOS [Concomitant]
  3. QUINAPRIL [Concomitant]
  4. FRUSEMIDE [Concomitant]
  5. ZOLPIDEM TARTRATE [Concomitant]
  6. LETROZOLE [Concomitant]
  7. GLIPIZIDE [Concomitant]
  8. ARICEPT [Concomitant]
  9. ADVAIR DISKUS 100/50 [Concomitant]

REACTIONS (1)
  - DRUG INEFFECTIVE [None]
